FAERS Safety Report 7878308-7 (Version None)
Quarter: 2011Q4

REPORT INFORMATION
  Report Type: 
  Country: None (occurrence: None)
  Receive Date: 20111028
  Receipt Date: 20111018
  Transmission Date: 20120403
  Serious: Yes (Hospitalization)
  Sender: FDA-Public Use
  Company Number: 11-656

PATIENT
  Age: 32 Year
  Sex: Female

DRUGS (2)
  1. CITALOPRAM HYDROBROMIDE [Concomitant]
  2. IBUPROFEN-CODEINE [Suspect]
     Indication: MIGRAINE
     Dosage: 25 DF/QW ({20/QD), ORAL
     Route: 048

REACTIONS (9)
  - TOXICITY TO VARIOUS AGENTS [None]
  - HYPOTENSION [None]
  - ABDOMINAL PAIN UPPER [None]
  - PARALYSIS FLACCID [None]
  - RENAL TUBULAR ACIDOSIS [None]
  - EROSIVE OESOPHAGITIS [None]
  - ELECTROCARDIOGRAM ST SEGMENT DEPRESSION [None]
  - HYPOKALAEMIA [None]
  - GASTRIC ULCER [None]
